FAERS Safety Report 6294827-1 (Version None)
Quarter: 2009Q3

REPORT INFORMATION
  Report Type: 
  Country: None (occurrence: None)
  Receive Date: 20090803
  Receipt Date: 20090720
  Transmission Date: 20100115
  Serious: Yes (Hospitalization, Other)
  Sender: FDA-Public Use
  Company Number: PHHY2009BR30200

PATIENT
  Sex: Male

DRUGS (10)
  1. TOFRANIL [Suspect]
     Dosage: 25 MG, UNK
     Dates: start: 20040201
  2. TOFRANIL [Suspect]
     Dosage: 125MG/DAY
  3. TOFRANIL [Suspect]
     Dosage: 100MG/DAY
  4. CARBAMAZEPINE [Suspect]
     Indication: BIPOLAR DISORDER
     Dosage: 400MG DAILY
     Route: 048
  5. CARBAMAZEPINE [Suspect]
     Indication: DEPRESSION
  6. TRILEPTAL [Suspect]
     Dosage: 300 MG, UNK
     Dates: start: 20050101
  7. RIVOTRIL [Concomitant]
     Indication: ANXIOLYTIC THERAPY
     Dosage: 1MG AT NIGHT
     Route: 048
  8. SEROQUEL [Concomitant]
     Indication: PSYCHOTIC DISORDER
     Dosage: 50 MG AT NIGHT
     Route: 048
  9. NEURAL [Concomitant]
     Dosage: 1 DF/Q12H
  10. CARBONATO E LITIO [Concomitant]
     Indication: BIPOLAR DISORDER
     Dosage: 1050MG/DAY

REACTIONS (4)
  - BIPOLAR DISORDER [None]
  - EUPHORIC MOOD [None]
  - PHYSICAL ASSAULT [None]
  - PSYCHOTIC DISORDER [None]
